APPROVED DRUG PRODUCT: DICLOFENAC SODIUM
Active Ingredient: DICLOFENAC SODIUM
Strength: 0.1%
Dosage Form/Route: SOLUTION/DROPS;OPHTHALMIC
Application: A078553 | Product #001 | TE Code: AT
Applicant: RISING PHARMA HOLDINGS INC
Approved: Dec 28, 2007 | RLD: No | RS: No | Type: RX